FAERS Safety Report 6709774-8 (Version None)
Quarter: 2010Q2

REPORT INFORMATION
  Report Type: 
  Country: None (occurrence: None)
  Receive Date: 20100504
  Receipt Date: 20100429
  Transmission Date: 20101027
  Serious: Yes (Death)
  Sender: FDA-Public Use
  Company Number: AU-ROXANE LABORATORIES, INC.-2010-RO-00501RO

PATIENT
  Age: 49 Year
  Sex: Male

DRUGS (4)
  1. DIAZEPAM [Suspect]
  2. HEROIN [Suspect]
     Indication: DRUG ABUSE
     Route: 042
  3. 7-AMINO NITRAZEPAM [Suspect]
  4. TEMAZEPAM [Suspect]

REACTIONS (1)
  - NARCOTIC INTOXICATION [None]
